FAERS Safety Report 19903140 (Version 1)
Quarter: 2021Q4

REPORT INFORMATION
  Report Type: Spontaneous
  Country: AR (occurrence: AR)
  Receive Date: 20211001
  Receipt Date: 20211001
  Transmission Date: 20220303
  Serious: Yes (Other)
  Sender: FDA-Public Use
  Company Number: AR-002147023-NVSC2021AR219763

PATIENT
  Sex: Female

DRUGS (1)
  1. XOLAIR [Suspect]
     Active Substance: OMALIZUMAB
     Indication: Chronic spontaneous urticaria
     Dosage: 300 MG, EVERY 4 WEEKS(STARTED 2-3 YEARS AGO)
     Route: 058

REACTIONS (4)
  - Adrenal insufficiency [Unknown]
  - Anaemia [Unknown]
  - Pruritus [Unknown]
  - Urticaria [Unknown]
